FAERS Safety Report 4840822-6 (Version None)
Quarter: 2005Q4

REPORT INFORMATION
  Report Type: 
  Country: None (occurrence: None)
  Receive Date: 20051130
  Receipt Date: 20050418
  Transmission Date: 20060501
  Serious: No
  Sender: FDA-Public Use
  Company Number: US-BRISTOL-MYERS SQUIBB COMPANY-12937066

PATIENT
  Age: 68 Year
  Sex: Female
  Weight: 66 kg

DRUGS (6)
  1. AVALIDE [Suspect]
     Indication: HYPERTENSION
     Dates: start: 20050101
  2. ASPIRIN [Concomitant]
  3. FOSAMAX [Concomitant]
  4. HYDROCHLOROTHIAZIDE [Concomitant]
  5. TOPROL-XL [Concomitant]
  6. VYTORIN [Concomitant]

REACTIONS (2)
  - DYSGEUSIA [None]
  - DYSPHAGIA [None]
